FAERS Safety Report 6701235-5 (Version None)
Quarter: 2010Q2

REPORT INFORMATION
  Report Type: 
  Country: None (occurrence: None)
  Receive Date: 20100427
  Receipt Date: 20100413
  Transmission Date: 20101027
  Serious: Yes (Other)
  Sender: FDA-Public Use
  Company Number: 009520

PATIENT
  Age: 5 Month
  Sex: Male
  Weight: 5 kg

DRUGS (4)
  1. BUSULFEX [Suspect]
     Indication: STEM CELL TRANSPLANT
     Dosage: 16 MG/KG, INTRAVENOUS
     Route: 042
  2. CYCLOPHOSPHAMIDE [Concomitant]
  3. CYCLOSPORINE [Concomitant]
  4. METHOTREXATE [Concomitant]

REACTIONS (3)
  - COUGH [None]
  - INFLUENZA [None]
  - RHINITIS [None]
